FAERS Safety Report 24671219 (Version 1)
Quarter: 2024Q4

REPORT INFORMATION
  Report Type: Spontaneous
  Country: US (occurrence: None)
  Receive Date: 20241127
  Receipt Date: 20241127
  Transmission Date: 20250114
  Serious: Yes (Hospitalization)
  Sender: Public
  Company Number: None

PATIENT
  Sex: Female

DRUGS (1)
  1. CAPECITABINE [Suspect]
     Active Substance: CAPECITABINE
     Indication: Brain neoplasm malignant
     Dosage: OTHER FREQUENCY : 3 TABS TWICE DAILY;?
     Route: 048

REACTIONS (1)
  - Hospitalisation [None]
